FAERS Safety Report 11810726 (Version 1)
Quarter: 2015Q4

REPORT INFORMATION
  Report Type: Report from Study
  Country: GB (occurrence: GB)
  Receive Date: 20151208
  Receipt Date: 20151208
  Transmission Date: 20160305
  Serious: Yes (Hospitalization, Other)
  Sender: FDA-Public Use
  Company Number: GB-GLAXOSMITHKLINE-Z0022103B

PATIENT
  Age: 60 Year
  Sex: Female
  Weight: 82 kg

DRUGS (3)
  1. MYFORTIC [Concomitant]
     Active Substance: MYCOPHENOLATE SODIUM
     Indication: GASTROINTESTINAL DISORDER
     Dosage: 360 MG, BID
     Route: 048
     Dates: start: 20140216
  2. BELIMUMAB [Suspect]
     Active Substance: BELIMUMAB
     Indication: TRANSPLANT REJECTION
     Dosage: 10 MG/KG, CYC
     Route: 042
     Dates: start: 20140127
  3. MYCOPHENOLATE MOFETIL. [Concomitant]
     Active Substance: MYCOPHENOLATE MOFETIL
     Indication: GASTROINTESTINAL DISORDER
     Dosage: 500 MG, BID
     Route: 048
     Dates: start: 20140127, end: 20140216

REACTIONS (4)
  - Clostridium difficile colitis [Recovered/Resolved]
  - Lymphocele [Recovered/Resolved]
  - Diarrhoea [Recovered/Resolved]
  - Wound infection [Recovered/Resolved]

NARRATIVE: CASE EVENT DATE: 20140216
